FAERS Safety Report 6243384-4 (Version None)
Quarter: 2009Q2

REPORT INFORMATION
  Report Type: 
  Country: None (occurrence: None)
  Receive Date: 20090622
  Receipt Date: 20090622
  Transmission Date: 20091009
  Serious: Yes (Other)
  Sender: FDA-Public Use
  Company Number: None

PATIENT
  Age: 53 Year
  Sex: Male
  Weight: 75.7507 kg

DRUGS (1)
  1. ZICAM NASAL GEL EXTREME CONGESTION RELIEF MATRIXX INNITIATIVE [Suspect]
     Indication: HYPERSENSITIVITY
     Dosage: 1-2 SPRAYS IN EACH NOSTRIL EVERY 8 HRS
     Route: 045
     Dates: start: 20090526, end: 20090608

REACTIONS (2)
  - ANOSMIA [None]
  - DYSGEUSIA [None]
